FAERS Safety Report 6430819-7 (Version None)
Quarter: 2009Q4

REPORT INFORMATION
  Report Type: 
  Country: None (occurrence: None)
  Receive Date: 20091106
  Receipt Date: 20091029
  Transmission Date: 20100525
  Serious: Yes (Other)
  Sender: FDA-Public Use
  Company Number: US-JNJFOC-20091100319

PATIENT
  Sex: Female
  Weight: 58.97 kg

DRUGS (6)
  1. LEVAQUIN [Suspect]
     Route: 048
     Dates: start: 20081101, end: 20090101
  2. LEVAQUIN [Suspect]
     Indication: SINUSITIS
     Route: 048
     Dates: start: 20081101, end: 20090101
  3. VERAPAMIL [Concomitant]
     Route: 065
  4. LIPITOR [Concomitant]
     Route: 065
  5. ATENOLOL [Concomitant]
  6. EFFEXOR XR [Concomitant]
     Route: 065

REACTIONS (10)
  - ARTHRALGIA [None]
  - DECREASED APPETITE [None]
  - DYSPNOEA [None]
  - FATIGUE [None]
  - HYPOAESTHESIA [None]
  - JOINT SWELLING [None]
  - MENISCUS LESION [None]
  - TACHYCARDIA [None]
  - TENDONITIS [None]
  - WEIGHT DECREASED [None]
